FAERS Safety Report 5651172-2 (Version None)
Quarter: 2008Q1

REPORT INFORMATION
  Report Type: 
  Country: None (occurrence: None)
  Receive Date: 20080131
  Receipt Date: 20071202
  Transmission Date: 20080703
  Serious: No
  Sender: FDA-Public Use
  Company Number: US200712000264

PATIENT
  Age: 57 Year
  Sex: Female

DRUGS (9)
  1. BYETTA [Suspect]
     Indication: TYPE 2 DIABETES MELLITUS
     Dosage: 5 UG, 2/D, SUBCUTANEOUS ; SUBCUTANEOUS
     Route: 058
     Dates: start: 20071202, end: 20071202
  2. BYETTA [Suspect]
     Indication: TYPE 2 DIABETES MELLITUS
     Dosage: 5 UG, 2/D, SUBCUTANEOUS ; SUBCUTANEOUS
     Route: 058
     Dates: start: 20071202
  3. HUMULIN REGULAR (INSULIN HUMAN) [Concomitant]
  4. FUROSEMIDE [Concomitant]
  5. PLAVIX [Concomitant]
  6. ASPIRIN /USA/ (ACETYLSALICYLIC ACID) [Concomitant]
  7. METOPROLOL TARTRATE [Concomitant]
  8. PRAVASTATIN [Concomitant]
  9. ENALAPRIL MALEATE [Concomitant]

REACTIONS (1)
  - INCORRECT DOSE ADMINISTERED [None]
